FAERS Safety Report 16145878 (Version 1)
Quarter: 2019Q2

REPORT INFORMATION
  Report Type: Spontaneous
  Country: US (occurrence: US)
  Receive Date: 20190227
  Receipt Date: 20190227
  Transmission Date: 20190711
  Serious: No
  Sender: FDA-Public Use
  Company Number: None

PATIENT
  Age: 68 Year
  Sex: Male
  Weight: 102.97 kg

DRUGS (1)
  1. CIMZIA [Suspect]
     Active Substance: CERTOLIZUMAB PEGOL
     Indication: CROHN^S DISEASE
     Dosage: INJECT 400MG (2 SYRINGES) SUBCUTANEOUSLY AT WEEKS 0, 2 AND 4 AS DIRECTED
     Route: 058
     Dates: start: 201801

REACTIONS (1)
  - Carpal tunnel decompression [None]
